FAERS Safety Report 5842005-X (Version None)
Quarter: 2008Q3

REPORT INFORMATION
  Report Type: 
  Country: None (occurrence: None)
  Receive Date: 20080812
  Receipt Date: 20080730
  Transmission Date: 20090109
  Serious: Yes (Other)
  Sender: FDA-Public Use
  Company Number: JP-ASTRAZENECA-2008AP05967

PATIENT
  Age: 50 Year
  Sex: Male

DRUGS (3)
  1. SEROQUEL [Suspect]
     Indication: SCHIZOPHRENIA
     Route: 048
  2. DEPAKENE [Suspect]
     Route: 048
  3. SERENACE [Suspect]
     Route: 048

REACTIONS (1)
  - PANCYTOPENIA [None]
